FAERS Safety Report 7973428-0 (Version None)
Quarter: 2011Q4

REPORT INFORMATION
  Report Type: 
  Country: None (occurrence: None)
  Receive Date: 20111213
  Receipt Date: 20111201
  Transmission Date: 20120403
  Serious: Yes (Hospitalization, Other)
  Sender: FDA-Public Use
  Company Number: US-ELI_LILLY_AND_COMPANY-US201112001017

PATIENT
  Sex: Female

DRUGS (12)
  1. OS-CAL [Concomitant]
  2. LOMOTIL [Concomitant]
  3. LOTREL [Concomitant]
  4. MULTI-VITAMIN [Concomitant]
  5. VITAMIN B-12 [Concomitant]
  6. GABAPENTIN [Concomitant]
  7. ASPIRIN [Concomitant]
  8. CIPROFLOXACIN [Concomitant]
  9. FORTEO [Suspect]
     Indication: OSTEOPOROSIS
     Dosage: 20 UG, QD
     Dates: start: 20111029
  10. TOPROL-XL [Concomitant]
  11. LEVOTHYROXINE SODIUM [Concomitant]
  12. ALIGN [Concomitant]

REACTIONS (3)
  - ESCHERICHIA INFECTION [None]
  - THROMBOSIS [None]
  - MUSCULAR WEAKNESS [None]
